FAERS Safety Report 8770764 (Version 1)
Quarter: 2012Q4

REPORT INFORMATION
  Report Type: 
  Country: US (occurrence: US)
  Receive Date: 20120906
  Receipt Date: 20120906
  Transmission Date: 20130627
  Serious: No
  Sender: FDA-Public Use
  Company Number: US-ASTRAZENECA-2012SE57754

PATIENT
  Age: 48 Year
  Sex: Female

DRUGS (5)
  1. SYMBICORT [Suspect]
     Dosage: 160 MCG, FREQUENCY UNKNOWN
     Route: 055
  2. CRESTOR [Suspect]
     Route: 048
  3. AMIODARONE [Concomitant]
  4. SINGULAIR [Concomitant]
  5. ZOLOFT [Concomitant]

REACTIONS (1)
  - Alopecia [Unknown]
